FAERS Safety Report 9288419 (Version 1)
Quarter: 2013Q2

REPORT INFORMATION
  Report Type: Spontaneous
  Country: US (occurrence: US)
  Receive Date: 20130514
  Receipt Date: 20130514
  Transmission Date: 20140414
  Serious: Yes (Other)
  Sender: FDA-Public Use
  Company Number: US-BAYER-2013-056765

PATIENT
  Age: 63 Year
  Sex: Male
  Weight: 99 kg

DRUGS (5)
  1. ALEVE CAPLET [Suspect]
     Indication: NECK PAIN
     Dosage: 3 DF - 2 CAPLETS IN THE MORNING AND 1 IN THE EVENING.
     Route: 048
     Dates: start: 2012, end: 2012
  2. ALEVE CAPLET [Suspect]
     Indication: PAIN IN EXTREMITY
  3. MULTIVITAMIN [Concomitant]
  4. ASPIRIN [Concomitant]
  5. LISINOPRIL [Concomitant]

REACTIONS (8)
  - Incorrect drug administration duration [None]
  - Blister [Not Recovered/Not Resolved]
  - Blister infected [None]
  - Blister [Recovered/Resolved]
  - Blister infected [None]
  - Blister [Recovered/Resolved]
  - Blister infected [None]
  - Diabetic foot [None]
